FAERS Safety Report 6968516-1 (Version None)
Quarter: 2010Q3

REPORT INFORMATION
  Report Type: 
  Country: None (occurrence: None)
  Receive Date: 20100907
  Receipt Date: 20100827
  Transmission Date: 20110219
  Serious: Yes (Hospitalization, Other)
  Sender: FDA-Public Use
  Company Number: JP-ROCHE-724633

PATIENT
  Age: 71 Year
  Sex: Female

DRUGS (11)
  1. AVASTIN [Suspect]
     Indication: PRODUCT USED FOR UNKNOWN INDICATION
     Dosage: NOTE: DOSAGE IS UNCERTAIN
     Route: 041
  2. ELPLAT [Concomitant]
     Route: 041
  3. FLUOROURACIL [Concomitant]
     Route: 040
  4. FLUOROURACIL [Concomitant]
     Dosage: NOTE: DOASGE IS UNCERATAIN
     Route: 040
  5. FLUOROURACIL [Concomitant]
     Route: 040
  6. FLUOROURACIL [Concomitant]
     Route: 041
  7. FLUOROURACIL [Concomitant]
     Route: 041
  8. LEUCOVORIN CALCIUM [Concomitant]
     Route: 041
  9. LEUCOVORIN CALCIUM [Concomitant]
     Route: 041
  10. LEUCOVORIN CALCIUM [Concomitant]
     Route: 041
  11. IRINOTECAN HCL [Concomitant]
     Route: 041

REACTIONS (2)
  - BONE MARROW FAILURE [None]
  - NEUROPATHY PERIPHERAL [None]
